FAERS Safety Report 9309097 (Version 1)
Quarter: 2013Q2

REPORT INFORMATION
  Report Type: Spontaneous
  Country: US (occurrence: US)
  Receive Date: 20130525
  Receipt Date: 20130525
  Transmission Date: 20140414
  Serious: No
  Sender: FDA-Public Use
  Company Number: US-BRISTOL-MYERS SQUIBB COMPANY-18696336

PATIENT
  Age: 57 Year
  Sex: Male
  Weight: 104.31 kg

DRUGS (2)
  1. BYDUREON [Suspect]
     Indication: GLUCOSE TOLERANCE IMPAIRED
     Route: 058
     Dates: start: 201302
  2. METFORMIN [Concomitant]
     Indication: GLUCOSE TOLERANCE IMPAIRED
     Route: 048

REACTIONS (3)
  - Injection site nodule [Not Recovered/Not Resolved]
  - Injection site pruritus [Recovered/Resolved]
  - Off label use [Not Recovered/Not Resolved]
